FAERS Safety Report 4527802-5 (Version None)
Quarter: 2004Q4

REPORT INFORMATION
  Report Type: 
  Country: None (occurrence: None)
  Receive Date: 20041123
  Receipt Date: 20040311
  Transmission Date: 20050328
  Serious: Yes (Other)
  Sender: FDA-Public Use
  Company Number: ATO-04-0228(0)

PATIENT
  Age: 76 Year
  Sex: Male
  Weight: 63.9572 kg

DRUGS (11)
  1. TRISENOX [Suspect]
     Indication: MYELODYSPLASTIC SYNDROME
     Dosage: (0.25 MG/KG,5X/WK, 2WKS ON 2WKS OFF),IVI
     Dates: start: 20040308, end: 20040310
  2. TRAZODONE HCL [Concomitant]
  3. OMEPRAZOLE [Concomitant]
  4. REMERON [Concomitant]
  5. IRON [Concomitant]
  6. ZOFRAN [Concomitant]
  7. PYRIDOXINE HCL [Concomitant]
  8. METFORMIN HCL [Concomitant]
  9. INSULIN [Concomitant]
  10. FELODIPINE [Concomitant]
  11. AMINOCAPROIC ACID [Concomitant]

REACTIONS (2)
  - CHILLS [None]
  - PYREXIA [None]
